FAERS Safety Report 7966537 (Version 2)
Quarter: 2018Q4

REPORT INFORMATION
  Report Type: Spontaneous
  Country: ES (occurrence: ES)
  Receive Date: 20110531
  Receipt Date: 20181226
  Transmission Date: 20190205
  Serious: Yes (Other)
  Sender: FDA-Public Use
  Company Number: ES-PFIZER INC-2011112794

PATIENT
  Age: 35 Year
  Sex: Male

DRUGS (2)
  1. CASPOFUNGIN [Concomitant]
     Active Substance: CASPOFUNGIN
     Dosage: UNK
     Dates: start: 200802, end: 200803
  2. VFEND [Suspect]
     Active Substance: VORICONAZOLE
     Indication: CEREBRAL ASPERGILLOSIS
     Dosage: 200 MG, 2X/DAY
     Route: 048
     Dates: start: 200801, end: 200809

REACTIONS (1)
  - Pseudoporphyria [Recovered/Resolved]

NARRATIVE: CASE EVENT DATE: 200806
